FAERS Safety Report 7989198-6 (Version None)
Quarter: 2011Q4

REPORT INFORMATION
  Report Type: 
  Country: None (occurrence: None)
  Receive Date: 20111219
  Receipt Date: 20111214
  Transmission Date: 20120403
  Serious: Yes (Death)
  Sender: FDA-Public Use
  Company Number: RU-JNJFOC-20111204994

PATIENT
  Age: 1 Month

DRUGS (5)
  1. CYCLOPHOSPHAMIDE [Suspect]
     Indication: NEUROBLASTOMA
     Route: 065
  2. ETOPOSIDE [Suspect]
     Indication: NEUROBLASTOMA
     Route: 065
  3. DOXORUBICIN HCL [Suspect]
     Indication: NEUROBLASTOMA
     Route: 042
  4. RADIOTHERAPY [Concomitant]
     Indication: NEUROBLASTOMA
     Route: 065
  5. CARBOPLATIN [Suspect]
     Indication: NEUROBLASTOMA
     Route: 065

REACTIONS (1)
  - TOXICITY TO VARIOUS AGENTS [None]
